FAERS Safety Report 26125302 (Version 1)
Quarter: 2025Q4

REPORT INFORMATION
  Report Type: Other
  Country: EU (occurrence: EU)
  Receive Date: 20251205
  Receipt Date: 20251205
  Transmission Date: 20260118
  Serious: Yes (Death, Hospitalization)
  Sender: ANI
  Company Number: EU-ANIPHARMA-035474

PATIENT
  Age: 15 Year
  Sex: Male

DRUGS (6)
  1. LEUCOVORIN [Suspect]
     Active Substance: LEUCOVORIN\LEUCOVORIN CALCIUM
     Indication: Colorectal adenocarcinoma
     Dosage: FIRST LINE CHEMOTHERAPY, SIX CYCLES, FOLFOX REGIMEN
  2. FLUOROURACIL [Concomitant]
     Active Substance: FLUOROURACIL
     Indication: Colorectal adenocarcinoma
     Dosage: FIRST LINE CHEMOTHERAPY, SIX CYCLES, FOLFOX REGIMEN
  3. OXALIPLATIN [Concomitant]
     Active Substance: OXALIPLATIN
     Indication: Colorectal adenocarcinoma
     Dosage: FIRST LINE CHEMOTHERAPY, SIX CYCLES, FOLFOX REGIMEN
  4. CETUXIMAB [Concomitant]
     Active Substance: CETUXIMAB
     Indication: Colorectal adenocarcinoma
     Dosage: FIRST LINE CHEMOTHERAPY, SIX CYCLES
  5. FLUOROURACIL [Concomitant]
     Active Substance: FLUOROURACIL
     Indication: Colorectal adenocarcinoma
     Dosage: SECOND LINE CHEMOTHERAPY, SIX CYCLES
  6. CETUXIMAB [Concomitant]
     Active Substance: CETUXIMAB
     Indication: Colorectal adenocarcinoma
     Dosage: SECOND LINE CHEMOTHERAPY, SIX CYCLES

REACTIONS (1)
  - Disease progression [Fatal]
